FAERS Safety Report 17100100 (Version 2)
Quarter: 2020Q1

REPORT INFORMATION
  Report Type: Spontaneous
  Country: DE (occurrence: DE)
  Receive Date: 20191202
  Receipt Date: 20200217
  Transmission Date: 20200409
  Serious: Yes (Other)
  Sender: FDA-Public Use
  Company Number: NVSC2019DE052652

PATIENT
  Sex: Male

DRUGS (13)
  1. ENTRESTO [Interacting]
     Active Substance: SACUBITRIL\VALSARTAN
     Dosage: 50 MG, UNKNOWN (24/26 MG)
     Route: 065
     Dates: start: 20190909
  2. TORASEMID AL [Interacting]
     Active Substance: TORSEMIDE
     Indication: PRODUCT USED FOR UNKNOWN INDICATION
     Dosage: 20 MG, QD (1QD)
     Route: 065
     Dates: start: 20171113
  3. BICALUTAMID [Concomitant]
     Active Substance: BICALUTAMIDE
     Indication: PRODUCT USED FOR UNKNOWN INDICATION
     Dosage: 50 MG, UNKNOWN
     Route: 065
     Dates: start: 20200124
  4. ENTRESTO [Suspect]
     Active Substance: SACUBITRIL\VALSARTAN
     Indication: CARDIAC FAILURE
     Dosage: 100 MG, TID
     Route: 065
     Dates: start: 20171113
  5. MARCUMAR [Concomitant]
     Active Substance: PHENPROCOUMON
     Indication: PRODUCT USED FOR UNKNOWN INDICATION
     Dosage: UNK UNK, UNKNOWN (SINCE 20 YEARS, PER PRN QUICK)
     Route: 065
     Dates: start: 20000201
  6. TAMSULOSIN [Concomitant]
     Active Substance: TAMSULOSIN
     Indication: PRODUCT USED FOR UNKNOWN INDICATION
     Dosage: UNK UNK, UNKNOWN (EVERY SECOND TO THIRD DAY)
     Route: 065
     Dates: start: 20190522
  7. XTANDI [Concomitant]
     Active Substance: ENZALUTAMIDE
     Indication: PROSTATIC DISORDER
     Dosage: 40 MG, QD
     Route: 065
     Dates: start: 20190909
  8. ADENURIC [Concomitant]
     Active Substance: FEBUXOSTAT
     Indication: PROSTATIC DISORDER
     Dosage: 0.25 DF, QD  (80 MG)
     Route: 065
     Dates: start: 2019
  9. ENTRESTO [Interacting]
     Active Substance: SACUBITRIL\VALSARTAN
     Dosage: 1 DF, BID (24/26 MG)
     Route: 065
     Dates: start: 20200201
  10. TORASEMIDE [Interacting]
     Active Substance: TORSEMIDE
     Indication: PRODUCT USED FOR UNKNOWN INDICATION
     Dosage: UNK
     Route: 065
  11. SPIRONOLACTONE. [Concomitant]
     Active Substance: SPIRONOLACTONE
     Indication: PRODUCT USED FOR UNKNOWN INDICATION
     Dosage: UNK UNK, UNKNOWN (0.5QD)
     Route: 065
     Dates: start: 20050801
  12. SIXANTONE [Concomitant]
     Active Substance: LEUPROLIDE ACETATE
     Indication: PRODUCT USED FOR UNKNOWN INDICATION
     Dosage: UNK
     Route: 065
     Dates: start: 20130512
  13. ENTRESTO [Interacting]
     Active Substance: SACUBITRIL\VALSARTAN
     Dosage: 0.5 DF, UNKNOWN  (24/26 MG) 0.5 TABLET IRREGULAR INTAKE
     Route: 065

REACTIONS (7)
  - Neoplasm malignant [Unknown]
  - Drug ineffective [Unknown]
  - Asthenia [Unknown]
  - Drug interaction [Unknown]
  - Abdominal pain upper [Unknown]
  - Hypokinesia [Unknown]
  - Wrong technique in product usage process [Unknown]

NARRATIVE: CASE EVENT DATE: 20190909
